FAERS Safety Report 9784790 (Version 3)
Quarter: 2014Q2

REPORT INFORMATION
  Report Type: Spontaneous
  Country: US (occurrence: US)
  Receive Date: 20131227
  Receipt Date: 20140627
  Transmission Date: 20141212
  Serious: No
  Sender: FDA-Public Use
  Company Number: US-009507513-1312USA009918

PATIENT
  Sex: Female

DRUGS (1)
  1. IMPLANON [Suspect]
     Route: 059

REACTIONS (7)
  - Keloid scar [Unknown]
  - Implant site scar [Unknown]
  - Implant site fibrosis [Unknown]
  - Device difficult to use [Unknown]
  - Device deployment issue [Unknown]
  - Product quality issue [Unknown]
  - Device kink [Unknown]
